FAERS Safety Report 16037886 (Version 1)
Quarter: 2019Q1

REPORT INFORMATION
  Report Type: Spontaneous
  Country: PL (occurrence: PL)
  Receive Date: 20190305
  Receipt Date: 20190305
  Transmission Date: 20190418
  Serious: Yes (Other)
  Sender: FDA-Public Use
  Company Number: PL-MYLANLABS-2019M1019259

PATIENT
  Age: 7 Year
  Sex: Male
  Weight: 20 kg

DRUGS (2)
  1. KLACID [Suspect]
     Active Substance: CLARITHROMYCIN
     Indication: LYMPHADENOPATHY
     Dosage: 2.5 MILLILITER, BID
     Route: 048
     Dates: start: 20180212, end: 20180216
  2. KLACID [Suspect]
     Active Substance: CLARITHROMYCIN
     Indication: PHARYNGEAL ERYTHEMA

REACTIONS (2)
  - Gaze palsy [Recovered/Resolved]
  - Nystagmus [Recovered/Resolved]

NARRATIVE: CASE EVENT DATE: 20180213
